FAERS Safety Report 9670498 (Version 2)
Quarter: 2014Q1

REPORT INFORMATION
  Report Type: Spontaneous
  Country: US (occurrence: US)
  Receive Date: 20131106
  Receipt Date: 20140116
  Transmission Date: 20141002
  Serious: No
  Sender: FDA-Public Use
  Company Number: US-009507513-1311USA000616

PATIENT
  Age: 62 Year
  Sex: Female

DRUGS (2)
  1. SAPHRIS [Suspect]
     Indication: BIPOLAR DISORDER
     Dosage: 5 MG, BID
     Route: 060
     Dates: start: 20130910, end: 20130911
  2. SAPHRIS [Suspect]
     Indication: PSYCHOTIC DISORDER

REACTIONS (1)
  - Pruritus [Recovered/Resolved]
